FAERS Safety Report 7810907-0 (Version None)
Quarter: 2011Q4

REPORT INFORMATION
  Report Type: 
  Country: None (occurrence: None)
  Receive Date: 20111013
  Receipt Date: 20111010
  Transmission Date: 20120403
  Serious: No
  Sender: FDA-Public Use
  Company Number: US-PFIZER INC-2011243355

PATIENT
  Age: 40 Year
  Sex: Female

DRUGS (2)
  1. KLONOPIN [Suspect]
     Dosage: 2 MG, UNK
  2. PRISTIQ [Suspect]
     Dosage: UNK

REACTIONS (10)
  - MOOD ALTERED [None]
  - POOR QUALITY SLEEP [None]
  - MEMORY IMPAIRMENT [None]
  - IRRITABILITY [None]
  - DYSPNOEA [None]
  - DEPRESSION [None]
  - ANXIETY [None]
  - HOSTILITY [None]
  - IMPATIENCE [None]
  - PALPITATIONS [None]
